FAERS Safety Report 21239677 (Version 1)
Quarter: 2022Q3

REPORT INFORMATION
  Report Type: Report from Study
  Country: DE (occurrence: DE)
  Receive Date: 20220822
  Receipt Date: 20220822
  Transmission Date: 20221027
  Serious: Yes (Hospitalization)
  Sender: FDA-Public Use
  Company Number: DE-BAXTER-2022BAX017730

PATIENT
  Age: 59 Year
  Sex: Female
  Weight: 83 kg

DRUGS (5)
  1. AMINO ACIDS\DEXTROSE\ELECTROLYTES NOS\SOYBEAN OIL [Suspect]
     Active Substance: AMINO ACIDS\DEXTROSE\ELECTROLYTES NOS\SOYBEAN OIL
     Indication: Parenteral nutrition
     Dosage: 1435 ML, ONCE DAILY ADMINISTRATED VIA CENTRAL VENOUS ROUTE AT AN INFUSION RATE OF 170 ML PER HOUR
     Route: 042
     Dates: start: 20220816
  2. CERNEVIT [Suspect]
     Active Substance: VITAMINS
     Indication: Parenteral nutrition
     Dosage: 750 MG, ONCE DAILY ADMINISTRATED VIA CENTRAL VENOUS ROUTE AT AN INFUSION RATE OF 170 ML PER HOUR
     Route: 042
     Dates: start: 20220816
  3. ELECTROLYTES NOS\MINERALS [Suspect]
     Active Substance: ELECTROLYTES NOS\MINERALS
     Indication: Parenteral nutrition
     Dosage: 10 ML, ONCE DAILY ADMINISTRATED VIA CENTRAL VENOUS ROUTE AT AN INFUSION RATE OF 170 ML PER HOUR
     Route: 042
     Dates: start: 20220816
  4. ELECTROLYTES NOS [Suspect]
     Active Substance: ELECTROLYTES NOS
     Indication: Parenteral nutrition
     Dosage: 500 ML, ONCE DAILY ADMINISTRATED VIA CETRAL VENOUS ROUTE AT AN INFUSION RATE OF 170 ML PER HOUR
     Route: 042
     Dates: start: 20220816
  5. UNSPECIFIED INGREDIENT [Suspect]
     Active Substance: UNSPECIFIED INGREDIENT
     Route: 065

REACTIONS (2)
  - Chills [Unknown]
  - Pyrexia [Unknown]

NARRATIVE: CASE EVENT DATE: 20220816
